FAERS Safety Report 6783460-0 (Version None)
Quarter: 2010Q2

REPORT INFORMATION
  Report Type: 
  Country: None (occurrence: None)
  Receive Date: 20100622
  Receipt Date: 20100618
  Transmission Date: 20101027
  Serious: Yes (Other)
  Sender: FDA-Public Use
  Company Number: US-BRISTOL-MYERS SQUIBB COMPANY-15155443

PATIENT
  Age: 64 Year
  Sex: Female
  Weight: 104 kg

DRUGS (7)
  1. AVAPRO [Suspect]
     Indication: HYPERTENSION
     Dates: start: 20090101
  2. TEGRETOL [Concomitant]
  3. MYSOLINE [Concomitant]
  4. LANTUS [Concomitant]
  5. CLONIDINE [Concomitant]
  6. PROCARDIA XL [Concomitant]
  7. SINGULAIR [Concomitant]

REACTIONS (2)
  - COUGH [None]
  - PNEUMONIA [None]
